FAERS Safety Report 7265252-1 (Version None)
Quarter: 2011Q1

REPORT INFORMATION
  Report Type: 
  Country: None (occurrence: None)
  Receive Date: 20110131
  Receipt Date: 20110126
  Transmission Date: 20110831
  Serious: Yes (Life-Threatening)
  Sender: FDA-Public Use
  Company Number: FR-ASTRAZENECA-2011SE04594

PATIENT
  Age: 9332 Day
  Sex: Female

DRUGS (10)
  1. TRANXENE [Concomitant]
  2. AUGMENTIN '125' [Suspect]
     Indication: PROPHYLAXIS
     Route: 042
     Dates: start: 20110117, end: 20110117
  3. ETOMIDATE [Concomitant]
     Dates: start: 20110117
  4. TRACRIUM [Concomitant]
     Dates: start: 20110117
  5. RENAGEL [Concomitant]
  6. REMIFENTANIL [Concomitant]
     Dates: start: 20110117
  7. IMOVANE [Concomitant]
  8. VENTOLIN [Concomitant]
  9. NAROPIN [Suspect]
     Indication: ANALGESIC THERAPY
     Route: 004
     Dates: start: 20110117, end: 20110117
  10. LYSANXIA [Concomitant]

REACTIONS (1)
  - ANAPHYLACTIC SHOCK [None]
